FAERS Safety Report 6527414-8 (Version None)
Quarter: 2010Q1

REPORT INFORMATION
  Report Type: 
  Country: None (occurrence: None)
  Receive Date: 20100105
  Receipt Date: 20091223
  Transmission Date: 20100710
  Serious: Yes (Hospitalization, Other)
  Sender: FDA-Public Use
  Company Number: GB-WATSON-2009-11102

PATIENT
  Age: 13 Year
  Sex: Male

DRUGS (3)
  1. PREDNISOLONE [Suspect]
     Indication: HEART TRANSPLANT
     Dosage: UNK
  2. AZATHIOPRINE [Suspect]
     Indication: HEART TRANSPLANT
     Dosage: UNK
  3. TACROLIMUS [Suspect]
     Indication: HEART TRANSPLANT
     Dosage: UNK

REACTIONS (1)
  - BURKITT'S LYMPHOMA [None]
